FAERS Safety Report 3207768 (Version 3)
Quarter: 2020Q3

REPORT INFORMATION
  Report Type: Spontaneous
  Country: US (occurrence: None)
  Receive Date: 19981210
  Receipt Date: 19990302
  Transmission Date: 20201105
  Serious: Yes (Life-Threatening)
  Sender: FDA-Public Use
  Company Number: 9840310

PATIENT
  Age: 17 Year
  Sex: Female

DRUGS (9)
  1. ALATROFLOXACIN MESYLATE. [Suspect]
     Active Substance: ALATROFLOXACIN MESYLATE
     Indication: PROPHYLAXIS
     Dosage: 200.00 MG TOTAL:INTRAVENOUS
     Route: 042
     Dates: start: 19980908, end: 19980908
  2. PROPOFOL. [Suspect]
     Active Substance: PROPOFOL
     Indication: ANAESTHESIA
     Dosage: 200.00 MG TOTAL: INTRAVENOUS
     Route: 042
     Dates: start: 19980908
  3. SIMETHICONE (DIMETHICONE) [Concomitant]
     Active Substance: DIMETHICONE
  4. VERSED [Suspect]
     Active Substance: MIDAZOLAM HYDROCHLORIDE
     Indication: ANAESTHESIA
     Dosage: 2.00 MG TOTAL: INTRAVENOUS
     Route: 042
     Dates: start: 19980908
  5. DOCUSATE SODIUM. [Concomitant]
     Active Substance: DOCUSATE SODIUM
  6. IBUPROFEN. [Concomitant]
     Active Substance: IBUPROFEN
  7. ROCURONIUM [Concomitant]
  8. FENTANYL. [Suspect]
     Active Substance: FENTANYL
     Indication: ANAESTHESIA
     Dosage: 100.00 MCG TOTAL: INTRAVENOUS
     Route: 042
     Dates: start: 19980908
  9. LACTATED RINGERS SOLUTION [Concomitant]
     Active Substance: CALCIUM CHLORIDE\POTASSIUM CHLORIDE\SODIUM CHLORIDE\SODIUM LACTATE

REACTIONS (7)
  - Urticaria [None]
  - Hypotension [None]
  - Pharyngeal oedema [None]
  - Rash erythematous [None]
  - Dermatitis [None]
  - Drug interaction [None]
  - Tachycardia [None]

NARRATIVE: CASE EVENT DATE: 19980908
